FAERS Safety Report 14778733 (Version 1)
Quarter: 2018Q2

REPORT INFORMATION
  Report Type: Spontaneous
  Country: US (occurrence: US)
  Receive Date: 20180419
  Receipt Date: 20180419
  Transmission Date: 20180711
  Serious: Yes (Hospitalization)
  Sender: FDA-Public Use
  Company Number: US-LEXICON PHARMACEUTICALS, INC-18-1606-00407

PATIENT
  Sex: Female

DRUGS (21)
  1. ATORVASTATIN CALCIUM. [Concomitant]
     Active Substance: ATORVASTATIN CALCIUM
  2. MULTIVITAMIN [Concomitant]
     Active Substance: VITAMINS
  3. SANDOSTATIN LAR DEPOT [Concomitant]
     Active Substance: OCTREOTIDE ACETATE
  4. IRON [Concomitant]
     Active Substance: IRON
  5. LASIX [Concomitant]
     Active Substance: FUROSEMIDE
  6. METHOTREXATE. [Concomitant]
     Active Substance: METHOTREXATE
  7. POTASSIUM CHLORIDE. [Concomitant]
     Active Substance: POTASSIUM CHLORIDE
  8. PREDNISONE. [Concomitant]
     Active Substance: PREDNISONE
  9. CALCIUM CARBONATE PLUS VITAMIN D [Concomitant]
  10. FENTANYL. [Concomitant]
     Active Substance: FENTANYL
  11. FLEXERIL [Concomitant]
     Active Substance: CYCLOBENZAPRINE HYDROCHLORIDE
  12. LIDOCAINE. [Concomitant]
     Active Substance: LIDOCAINE
  13. NORCO [Concomitant]
     Active Substance: ACETAMINOPHEN\HYDROCODONE BITARTRATE
  14. PEPCID [Concomitant]
     Active Substance: FAMOTIDINE
  15. CHOLESTYRAMINE. [Concomitant]
     Active Substance: CHOLESTYRAMINE
  16. REQUIP [Concomitant]
     Active Substance: ROPINIROLE HYDROCHLORIDE
  17. NAMBUTONE [Concomitant]
  18. TENORMIN [Concomitant]
     Active Substance: ATENOLOL
  19. COUMADIN [Concomitant]
     Active Substance: WARFARIN SODIUM
  20. TELOTRISTAT ETHYL [Suspect]
     Active Substance: TELOTRISTAT ETHYL
     Indication: CARCINOID TUMOUR OF THE CAECUM
     Route: 048
     Dates: start: 20170628
  21. TELOTRISTAT ETHYL [Suspect]
     Active Substance: TELOTRISTAT ETHYL
     Indication: CARCINOID SYNDROME

REACTIONS (1)
  - Anticoagulant therapy [Unknown]

NARRATIVE: CASE EVENT DATE: 2018
